FAERS Safety Report 7617610-0 (Version None)
Quarter: 2011Q3

REPORT INFORMATION
  Report Type: 
  Country: None (occurrence: None)
  Receive Date: 20110718
  Receipt Date: 20110712
  Transmission Date: 20111222
  Serious: Yes (Hospitalization)
  Sender: FDA-Public Use
  Company Number: US-B.I. PHARMACEUTICALS,INC./RIDGEFIELD-2011-BP-17581BP

PATIENT
  Age: 74 Year
  Sex: Male

DRUGS (7)
  1. DIGOXIN [Concomitant]
     Indication: HEART RATE IRREGULAR
     Route: 048
  2. ASPIRIN W/ CODEINE [Concomitant]
     Indication: ATRIAL FIBRILLATION
  3. PRADAXA [Suspect]
     Indication: ATRIAL FIBRILLATION
     Dosage: 300 MG
     Route: 048
     Dates: start: 20110602, end: 20110630
  4. DIGOXIN [Concomitant]
     Indication: ATRIAL FIBRILLATION
  5. COREG [Concomitant]
     Indication: HYPERTENSION
     Route: 048
  6. ASPIRIN W/ CODEINE [Concomitant]
     Indication: HEART RATE IRREGULAR
     Route: 048
  7. ZOCOR [Concomitant]
     Indication: BLOOD CHOLESTEROL INCREASED
     Route: 048

REACTIONS (1)
  - GASTROINTESTINAL HAEMORRHAGE [None]
